FAERS Safety Report 4407519-8 (Version None)
Quarter: 2004Q3

REPORT INFORMATION
  Report Type: 
  Country: None (occurrence: None)
  Receive Date: 20040721
  Receipt Date: 20040616
  Transmission Date: 20050211
  Serious: Yes (Death, Hospitalization)
  Sender: FDA-Public Use
  Company Number: CA_040607012

PATIENT
  Age: 60 Year
  Sex: Female

DRUGS (10)
  1. GEMCITABINE HYDROCHLORIDE-IV (GEMCITABINE) [Suspect]
     Indication: OVARIAN CANCER
     Dosage: 750 MG/M2 DAY
     Dates: start: 20021114, end: 20030502
  2. RAF KINASE INHIBITOR [Suspect]
     Indication: OVARIAN CANCER
     Dosage: 400 MG/2 DAY
     Dates: start: 20021025, end: 20030509
  3. BENADRYL [Concomitant]
  4. MUCOSITIS MOUTHWASH [Concomitant]
  5. NYSTATIN ORAL SUSPENSION BP (NYSTATIN) [Concomitant]
  6. DECADRON [Concomitant]
  7. PROCHLORPERAZINE [Concomitant]
  8. EXTRA STRENGTH TYLENOL [Concomitant]
  9. NEURONTIN [Concomitant]
  10. PERCOCET [Concomitant]

REACTIONS (5)
  - ANAEMIA [None]
  - HYPOCALCAEMIA [None]
  - HYPOMAGNESAEMIA [None]
  - OEDEMA [None]
  - RASH [None]
